FAERS Safety Report 6889250-2 (Version None)
Quarter: 2010Q3

REPORT INFORMATION
  Report Type: 
  Country: None (occurrence: None)
  Receive Date: 20100730
  Receipt Date: 20080131
  Transmission Date: 20110219
  Serious: No
  Sender: FDA-Public Use
  Company Number: US-PFIZER INC-2008010404

PATIENT
  Sex: Male
  Weight: 102.06 kg

DRUGS (6)
  1. LIPITOR [Suspect]
     Indication: ANGIOPLASTY
     Route: 048
  2. LIPITOR [Suspect]
     Indication: MYOCARDIAL INFARCTION
  3. LIPITOR [Suspect]
     Indication: BLOOD CHOLESTEROL INCREASED
  4. ATENOLOL [Concomitant]
     Indication: BLOOD PRESSURE ABNORMAL
  5. ACETYLSALICYLIC ACID SRT [Concomitant]
  6. ZOCOR [Concomitant]

REACTIONS (5)
  - BLOOD CHOLESTEROL INCREASED [None]
  - BLOOD TRIGLYCERIDES INCREASED [None]
  - MUSCLE SPASMS [None]
  - MYALGIA [None]
  - UNEVALUABLE EVENT [None]
